FAERS Safety Report 10021668 (Version 1)
Quarter: 2014Q1

REPORT INFORMATION
  Report Type: Spontaneous
  Country: US (occurrence: None)
  Receive Date: 20140318
  Receipt Date: 20140318
  Transmission Date: 20141002
  Serious: Yes (Other)
  Sender: FDA-Public Use
  Company Number: None

PATIENT
  Age: 35 Year
  Sex: Female
  Weight: 83.01 kg

DRUGS (1)
  1. MIRENA [Suspect]

REACTIONS (9)
  - Weight increased [None]
  - Abdominal distension [None]
  - Swelling face [None]
  - Local swelling [None]
  - Dry skin [None]
  - Pruritus [None]
  - Skin disorder [None]
  - Tooth discolouration [None]
  - Scleral discolouration [None]
